FAERS Safety Report 22653989 (Version 1)
Quarter: 2023Q2

REPORT INFORMATION
  Report Type: Spontaneous
  Country: US (occurrence: None)
  Receive Date: 20230628
  Receipt Date: 20230628
  Transmission Date: 20230721
  Serious: No
  Sender: FDA-Public Use
  Company Number: None

PATIENT

DRUGS (3)
  1. NITROGLYCERIN [Suspect]
     Active Substance: NITROGLYCERIN
     Dosage: OTHER STRENGTH : 200 MCG/ML;?
  2. FUROSEMIDE [Suspect]
     Active Substance: FUROSEMIDE
  3. DEVICE [Suspect]
     Active Substance: DEVICE

REACTIONS (2)
  - Incorrect drug administration rate [None]
  - Incorrect dose administered [None]
